FAERS Safety Report 19126591 (Version 1)
Quarter: 2021Q2

REPORT INFORMATION
  Report Type: Spontaneous
  Country: US (occurrence: US)
  Receive Date: 20210413
  Receipt Date: 20210413
  Transmission Date: 20210717
  Serious: Yes (Hospitalization)
  Sender: FDA-Public Use
  Company Number: None

PATIENT
  Age: 43 Year
  Sex: Male
  Weight: 89.81 kg

DRUGS (2)
  1. IOHEXOL (IOHEXOL 12MG/ML SOLN , ORAL) [Suspect]
     Active Substance: IOHEXOL
     Indication: X-RAY WITH CONTRAST
     Dates: start: 20210316, end: 20210316
  2. LISINOPRIL (LISINOPRIL 5MG TAB) [Suspect]
     Active Substance: LISINOPRIL
     Indication: HYPERTENSION
     Route: 048
     Dates: start: 20210314, end: 20210316

REACTIONS (1)
  - Angioedema [None]

NARRATIVE: CASE EVENT DATE: 20210317
